FAERS Safety Report 23956365 (Version 1)
Quarter: 2024Q2

REPORT INFORMATION
  Report Type: Spontaneous
  Country: US (occurrence: US)
  Receive Date: 20240610
  Receipt Date: 20240610
  Transmission Date: 20240715
  Serious: No
  Sender: FDA-Public Use
  Company Number: US-ABBVIE-5787584

PATIENT
  Age: 87 Year
  Sex: Male
  Weight: 90.718 kg

DRUGS (7)
  1. CREON [Suspect]
     Active Substance: PANCRELIPASE AMYLASE\PANCRELIPASE LIPASE\PANCRELIPASE PROTEASE
     Indication: Pancreatic failure
     Dosage: FORM STRENGTH: 3000 UNIT, 2 CAPSULES OF CREON EVERY MEALS.
     Route: 048
     Dates: start: 202405, end: 20240601
  2. NEOMYCIN [Concomitant]
     Active Substance: NEOMYCIN
     Indication: Product used for unknown indication
  3. XIFAXAN [Concomitant]
     Active Substance: RIFAXIMIN
     Indication: Gastrointestinal bacterial infection
  4. COLCHICINE [Concomitant]
     Active Substance: COLCHICINE
     Indication: Inflammation
  5. TADALAFIL [Concomitant]
     Active Substance: TADALAFIL
     Indication: Homosexuality
  6. COUMADIN [Concomitant]
     Active Substance: WARFARIN SODIUM
     Indication: Anticoagulant therapy
  7. TESTOSTERONE [Concomitant]
     Active Substance: TESTOSTERONE
     Indication: Reproductive system disorder prophylaxis

REACTIONS (8)
  - Asthenia [Recovered/Resolved]
  - Dizziness [Recovered/Resolved]
  - Syncope [Recovered/Resolved]
  - Syncope [Recovered/Resolved]
  - Chills [Recovered/Resolved]
  - Blood pressure increased [Recovered/Resolved]
  - Hypertension [Recovered/Resolved]
  - Dizziness [Recovered/Resolved]

NARRATIVE: CASE EVENT DATE: 20240525
